FAERS Safety Report 4622364-6 (Version None)
Quarter: 2005Q1

REPORT INFORMATION
  Report Type: 
  Country: None (occurrence: None)
  Receive Date: 20050325
  Receipt Date: 20050325
  Transmission Date: 20050727
  Serious: No
  Sender: FDA-Public Use
  Company Number: None

PATIENT
  Sex: Male
  Weight: 94.55 kg

DRUGS (6)
  1. IRINOTECAN HCL [Suspect]
     Dosage: DAY 1 OF WEEKS 1, 3, 5, AND 7
     Dates: start: 20040827
  2. FLUOROURACIL [Suspect]
     Dates: start: 20040827
  3. LEUCOVORIN CALCIUM [Suspect]
     Dates: start: 20040827
  4. OXALIPLATIN [Suspect]
     Dates: start: 20040827
  5. CETUXIMAB [Suspect]
     Dates: start: 20040827
  6. . [Concomitant]

REACTIONS (4)
  - DIFFICULTY IN WALKING [None]
  - MALIGNANT NEOPLASM PROGRESSION [None]
  - OEDEMA PERIPHERAL [None]
  - PAIN IN EXTREMITY [None]
